FAERS Safety Report 7327790-2 (Version None)
Quarter: 2011Q1

REPORT INFORMATION
  Report Type: 
  Country: None (occurrence: None)
  Receive Date: 20110303
  Receipt Date: 20110228
  Transmission Date: 20110831
  Serious: No
  Sender: FDA-Public Use
  Company Number: US-PFIZER INC-2011044153

PATIENT
  Age: 59 Year
  Sex: Female
  Weight: 56.689 kg

DRUGS (1)
  1. ADVIL LIQUI-GELS [Suspect]
     Indication: HEADACHE
     Dosage: 200 MG, UNK
     Route: 048

REACTIONS (3)
  - SWELLING FACE [None]
  - DRUG INEFFECTIVE [None]
  - ABDOMINAL DISTENSION [None]
